FAERS Safety Report 9018556 (Version 1)
Quarter: 2013Q1

REPORT INFORMATION
  Report Type: Spontaneous
  Country: US (occurrence: None)
  Receive Date: 20130111
  Receipt Date: 20130111
  Transmission Date: 20140127
  Serious: Yes (Death)
  Sender: FDA-Public Use
  Company Number: None

PATIENT
  Age: 44 Year
  Sex: Male

DRUGS (8)
  1. NEOMYCIN [Suspect]
     Dates: start: 20080515, end: 20080531
  2. NIACIN [Suspect]
     Dates: start: 20080519, end: 20080530
  3. CIPROFLOXACIN [Suspect]
     Dates: start: 20080420, end: 20080530
  4. ALDACTONE [Concomitant]
  5. LASIX [Concomitant]
  6. MORPHINE [Concomitant]
  7. VICODIN [Concomitant]
  8. CEFTRIAXONE [Concomitant]

REACTIONS (10)
  - Drug-induced liver injury [None]
  - Rash [None]
  - Hepatic failure [None]
  - Mental status changes [None]
  - Renal failure [None]
  - Multi-organ failure [None]
  - Metabolic acidosis [None]
  - Continuous haemodiafiltration [None]
  - General physical health deterioration [None]
  - Depressed level of consciousness [None]
